FAERS Safety Report 6992244-X (Version None)
Quarter: 2010Q3

REPORT INFORMATION
  Report Type: 
  Country: None (occurrence: None)
  Receive Date: 20100917
  Receipt Date: 20100910
  Transmission Date: 20110219
  Serious: Yes (Hospitalization)
  Sender: FDA-Public Use
  Company Number: JP-BRISTOL-MYERS SQUIBB COMPANY-15268501

PATIENT
  Age: 59 Year
  Sex: Male
  Weight: 52 kg

DRUGS (6)
  1. CETUXIMAB [Suspect]
     Indication: HEAD AND NECK CANCER
     Dosage: RECENT INF:26AUG10 STRENGTH:5MG/ML NO OF INF:14
     Route: 042
     Dates: start: 20100512
  2. CISPLATIN [Suspect]
     Indication: HEAD AND NECK CANCER
     Dosage: RECENT INF:20AUG10 NO OF INF:5
     Route: 042
     Dates: start: 20100512
  3. FLUOROURACIL [Suspect]
     Indication: HEAD AND NECK CANCER
     Dosage: AS CONT.INF FROM D1-4 OF CYCLE RECENT INF:24AUG10 NO OF INF:20
     Route: 042
     Dates: start: 20100512
  4. ALFACALCIDOL [Concomitant]
     Indication: MINERAL SUPPLEMENTATION
     Route: 048
  5. LEVOTHYROXINE [Concomitant]
     Indication: THYROID HORMONE REPLACEMENT THERAPY
     Route: 048
  6. CALCIUM LACTATE [Concomitant]
     Indication: MINERAL SUPPLEMENTATION
     Route: 048

REACTIONS (1)
  - DECREASED APPETITE [None]
